FAERS Safety Report 15360665 (Version 1)
Quarter: 2018Q3

REPORT INFORMATION
  Report Type: Spontaneous
  Country: US (occurrence: US)
  Receive Date: 20180907
  Receipt Date: 20180907
  Transmission Date: 20181010
  Serious: Yes (Life-Threatening, Hospitalization)
  Sender: FDA-Public Use
  Company Number: US-SCIEGEN PHARMACEUTICALS INC-2018SCILIT00597

PATIENT
  Age: 15 Year
  Sex: Female

DRUGS (1)
  1. BUPROPION HYDROCHLORIDE. [Suspect]
     Active Substance: BUPROPION HYDROCHLORIDE
     Indication: PRODUCT USED FOR UNKNOWN INDICATION
     Dosage: 6.6 GRAMS (22 TABLETS OF 300 MG)
     Route: 065

REACTIONS (7)
  - Intentional overdose [Recovered/Resolved]
  - Toxicity to various agents [Unknown]
  - Electrocardiogram QT interval [Recovered/Resolved]
  - Generalised tonic-clonic seizure [Recovered/Resolved]
  - Sinus tachycardia [Recovered/Resolved]
  - Intentional product misuse [Unknown]
  - Myoclonus [Recovered/Resolved]
